FAERS Safety Report 9376386 (Version 1)
Quarter: 2013Q3

REPORT INFORMATION
  Report Type: Spontaneous
  Country: US (occurrence: US)
  Receive Date: 20130701
  Receipt Date: 20130701
  Transmission Date: 20140515
  Serious: No
  Sender: FDA-Public Use
  Company Number: US-JNJFOC-20130606954

PATIENT
  Age: 50 Year
  Sex: Male

DRUGS (3)
  1. INVEGA SUSTENNA [Suspect]
     Indication: SCHIZOPHRENIA
     Dosage: SECOND INITIATION DOSE
     Route: 030
     Dates: start: 20130603
  2. INVEGA SUSTENNA [Suspect]
     Indication: SCHIZOPHRENIA
     Dosage: FIRST INITIATION DOSE
     Route: 030
     Dates: start: 20130506
  3. INVEGA [Concomitant]
     Route: 048
     Dates: start: 20130615

REACTIONS (1)
  - Drug dose omission [Unknown]
